FAERS Safety Report 14799464 (Version 1)
Quarter: 2018Q2

REPORT INFORMATION
  Report Type: Spontaneous
  Country: GB (occurrence: GB)
  Receive Date: 20180424
  Receipt Date: 20180424
  Transmission Date: 20180711
  Serious: Yes (Other)
  Sender: FDA-Public Use
  Company Number: GB-LANNETT COMPANY, INC.-GB-2018LAN000637

PATIENT
  Age: 79 Year
  Sex: Female

DRUGS (5)
  1. MEMANTINE HYDROCHLORIDE, 5 MG [Suspect]
     Active Substance: MEMANTINE HYDROCHLORIDE
     Dosage: 10 MG, QD (AT NIGHT)
     Route: 065
  2. LORAZEPAM. [Concomitant]
     Active Substance: LORAZEPAM
     Indication: MIXED DEMENTIA
     Dosage: 0.5 MG, QD
  3. MEMANTINE HYDROCHLORIDE, 5 MG [Suspect]
     Active Substance: MEMANTINE HYDROCHLORIDE
     Indication: MIXED DEMENTIA
     Dosage: 5 MG, QD, FOR 7 DAYS
     Route: 065
  4. QUETIAPINE. [Suspect]
     Active Substance: QUETIAPINE
     Indication: MIXED DEMENTIA
     Dosage: 50 MG, BID, AT NIGHT AND 09:00
     Route: 065
  5. SERTRALINE [Concomitant]
     Active Substance: SERTRALINE HYDROCHLORIDE
     Indication: MIXED DEMENTIA
     Dosage: 150 MG, QD

REACTIONS (1)
  - Bradycardia [Recovered/Resolved]
